FAERS Safety Report 8821389 (Version 2)
Quarter: 2012Q4

REPORT INFORMATION
  Report Type: 
  Country: US (occurrence: US)
  Receive Date: 20121002
  Receipt Date: 20121017
  Transmission Date: 20130627
  Serious: No
  Sender: FDA-Public Use
  Company Number: US-009507513-2012SP024750

PATIENT
  Sex: Female
  Weight: 63.49 kg

DRUGS (11)
  1. CORICIDIN HBP COUGH AND COLD [Suspect]
     Indication: SEASONAL ALLERGY
     Dosage: UNK UNK, Unknown
     Route: 048
  2. ALLEGRA [Concomitant]
     Indication: SEASONAL ALLERGY
     Dosage: 180 mg, Once
  3. ALLEGRA [Concomitant]
     Indication: MEDICAL OBSERVATION
  4. BENICAR HCT [Concomitant]
     Indication: HYPERTENSION
     Dosage: 40/25 mg, qd
  5. BAYER ENTERIC ASPIRIN [Concomitant]
     Indication: ARTHRITIS
     Dosage: UNK, prn
  6. CHOLECALCIFEROL [Concomitant]
     Indication: PRODUCT USED FOR UNKNOWN INDICATION
     Dosage: 2000 IU, qd
  7. VITAMIN B (UNSPECIFIED) [Concomitant]
     Indication: PRODUCT USED FOR UNKNOWN INDICATION
     Dosage: 100 IU, qd
  8. CENTRUM SILVER [Concomitant]
     Indication: PRODUCT USED FOR UNKNOWN INDICATION
     Dosage: 1 DF, qd
  9. CALCIUM (UNSPECIFIED) [Concomitant]
     Indication: PRODUCT USED FOR UNKNOWN INDICATION
     Dosage: 1500 mg, qd
  10. MAGNESIUM (UNSPECIFIED) [Concomitant]
     Indication: PRODUCT USED FOR UNKNOWN INDICATION
     Dosage: 500 mg, qd
  11. ZINK LINIMENT MEDIC [Concomitant]
     Indication: PRODUCT USED FOR UNKNOWN INDICATION
     Dosage: 10 mg, qd

REACTIONS (1)
  - No therapeutic response [Unknown]
